FAERS Safety Report 12215612 (Version 2)
Quarter: 2016Q2

REPORT INFORMATION
  Report Type: Spontaneous
  Country: US (occurrence: US)
  Receive Date: 20160328
  Receipt Date: 20160420
  Transmission Date: 20160815
  Serious: Yes (Other)
  Sender: FDA-Public Use
  Company Number: US-BAYER-2016-058641

PATIENT
  Age: 60 Year
  Sex: Male
  Weight: 73.92 kg

DRUGS (8)
  1. MELATONIN [Concomitant]
     Active Substance: MELATONIN
     Dosage: 2 DF, HS
  2. LANTUS [Concomitant]
     Active Substance: INSULIN GLARGINE
     Dosage: 25 U, QD
  3. BAYER LOW DOSE [Suspect]
     Active Substance: ASPIRIN
     Dosage: 81 MG, QD
     Dates: start: 2007
  4. PLAVIX [Concomitant]
     Active Substance: CLOPIDOGREL BISULFATE
     Dosage: 75 MG, QD
  5. BAYER LOW DOSE [Suspect]
     Active Substance: ASPIRIN
     Dosage: 81 MG, QOD
     Dates: start: 20160226
  6. ACTOS [Concomitant]
     Active Substance: PIOGLITAZONE HYDROCHLORIDE
     Dosage: 15 MG, QD
  7. LIPITOR [Concomitant]
     Active Substance: ATORVASTATIN CALCIUM
     Dosage: 10 MG, QD
  8. METFORMIN HYDROCHLORIDE. [Concomitant]
     Active Substance: METFORMIN HYDROCHLORIDE
     Dosage: 500 MG, QD

REACTIONS (14)
  - Foot amputation [None]
  - Carotid artery occlusion [None]
  - Coronary artery bypass [None]
  - Toe amputation [None]
  - Small intestinal haemorrhage [None]
  - Impaired healing [Recovered/Resolved]
  - Skin abrasion [None]
  - Small intestinal ulcer haemorrhage [None]
  - Wound dehiscence [None]
  - Foot amputation [None]
  - Impaired healing [None]
  - Wound infection [Recovering/Resolving]
  - Dyspnoea [None]
  - Arterial occlusive disease [None]

NARRATIVE: CASE EVENT DATE: 2007
